FAERS Safety Report 6774536-2 (Version None)
Quarter: 2010Q2

REPORT INFORMATION
  Report Type: 
  Country: None (occurrence: None)
  Receive Date: 20100617
  Receipt Date: 20100615
  Transmission Date: 20101027
  Serious: Yes (Death, Hospitalization, Other)
  Sender: FDA-Public Use
  Company Number: IT-CELGENEUS-083-21880-10041543

PATIENT
  Sex: Female
  Weight: 87 kg

DRUGS (5)
  1. REVLIMID [Suspect]
     Indication: MULTIPLE MYELOMA
     Route: 048
     Dates: start: 20100405, end: 20100407
  2. HYDROCHLOROTHIAZIDE W/VALSARTAN [Concomitant]
     Indication: HYPERTENSION
     Route: 065
  3. ALPRAZOLAM [Concomitant]
     Indication: DRUG USE FOR UNKNOWN INDICATION
     Route: 065
  4. CARBIDOPA AND LEVODOPA [Concomitant]
     Indication: PARKINSON'S DISEASE
     Route: 065
  5. INSULIN ASPART [Concomitant]
     Route: 065

REACTIONS (1)
  - VENTRICULAR FIBRILLATION [None]
